FAERS Safety Report 14005143 (Version 1)
Quarter: 2017Q3

REPORT INFORMATION
  Report Type: Spontaneous
  Country: JP (occurrence: JP)
  Receive Date: 20170922
  Receipt Date: 20170922
  Transmission Date: 20171128
  Serious: Yes (Hospitalization)
  Sender: FDA-Public Use
  Company Number: JP-ELI_LILLY_AND_COMPANY-JP201709007866

PATIENT
  Age: 72 Year
  Sex: Male

DRUGS (3)
  1. PACLITAXEL. [Concomitant]
     Active Substance: PACLITAXEL
     Indication: GASTRIC CANCER
     Dosage: 130 MG, OTHER
     Route: 042
     Dates: start: 20160506, end: 20160908
  2. CYRAMZA [Suspect]
     Active Substance: RAMUCIRUMAB
     Indication: GASTRIC CANCER
     Dosage: 520 MG, OTHER
     Route: 042
     Dates: start: 20160506
  3. CYRAMZA [Suspect]
     Active Substance: RAMUCIRUMAB
     Dosage: 520 MG, OTHER
     Route: 042
     Dates: end: 20160908

REACTIONS (1)
  - Tumour haemorrhage [Recovered/Resolved]

NARRATIVE: CASE EVENT DATE: 20160527
